FAERS Safety Report 5546129-6 (Version None)
Quarter: 2007Q4

REPORT INFORMATION
  Report Type: 
  Country: None (occurrence: None)
  Receive Date: 20071123
  Receipt Date: 20070227
  Transmission Date: 20080405
  Serious: Yes (Hospitalization)
  Sender: FDA-Public Use
  Company Number: 34779

PATIENT
  Age: 68 Year
  Sex: Male
  Weight: 100.2449 kg

DRUGS (1)
  1. LEUCOVORIN CALCIUM [Suspect]
     Indication: PANCREATIC NEUROENDOCRINE TUMOUR
     Dosage: 460 MG/Q3W/IV
     Route: 042
     Dates: start: 20060411, end: 20070130

REACTIONS (1)
  - DIARRHOEA [None]
